FAERS Safety Report 9551984 (Version 1)
Quarter: 2013Q3

REPORT INFORMATION
  Report Type: Spontaneous
  Country: AU (occurrence: None)
  Receive Date: 20130801
  Receipt Date: 20130801
  Transmission Date: 20140515
  Serious: Yes (Other)
  Sender: FDA-Public Use
  Company Number: AU-PMX022-13-00008

PATIENT
  Age: 4 Year
  Sex: Male
  Weight: 22 kg

DRUGS (4)
  1. ARIDOL [Suspect]
     Indication: INVESTIGATION
     Dosage: 155 MG, INHALATION
     Route: 055
     Dates: start: 20130510, end: 20130510
  2. SALBUTAMOL (SALBUTAMOL) (SALBUTAMOL) [Concomitant]
  3. FLIXOTIDE (FLUTICASONE PROPIONATE) (FLUTICASONE PROPIONATE) [Concomitant]
  4. STEROID (CORTICOSTEROIDS) [Concomitant]

REACTIONS (2)
  - Asthma [None]
  - Viral infection [None]
